FAERS Safety Report 23824532 (Version 1)
Quarter: 2024Q2

REPORT INFORMATION
  Report Type: Spontaneous
  Country: US (occurrence: US)
  Receive Date: 20240507
  Receipt Date: 20240507
  Transmission Date: 20240716
  Serious: No
  Sender: FDA-Public Use
  Company Number: US-JNJFOC-20240485098

PATIENT
  Age: 68 Year
  Sex: Female

DRUGS (20)
  1. TYLENOL 8HR [Suspect]
     Active Substance: ACETAMINOPHEN
     Indication: Procedural pain
     Route: 065
  2. ATROVENT [Concomitant]
     Active Substance: IPRATROPIUM BROMIDE
     Indication: Lung disorder
     Route: 065
  3. ALBUTEROL [Concomitant]
     Active Substance: ALBUTEROL
     Indication: Lung disorder
     Route: 065
  4. PROZAC [Concomitant]
     Active Substance: FLUOXETINE HYDROCHLORIDE
     Indication: Depression
     Route: 065
  5. BUSPAR [Concomitant]
     Active Substance: BUSPIRONE HYDROCHLORIDE
     Indication: Depression
     Route: 065
  6. VITAMIN C [Concomitant]
     Active Substance: ASCORBIC ACID
     Indication: Product used for unknown indication
     Route: 065
  7. CRANBERRY [Concomitant]
     Active Substance: CRANBERRY
     Indication: Product used for unknown indication
     Route: 065
  8. COLACE [Concomitant]
     Active Substance: DOCUSATE SODIUM
     Indication: Product used for unknown indication
     Route: 065
  9. PRALUENT [Concomitant]
     Active Substance: ALIROCUMAB
     Indication: Cardiac disorder
     Route: 065
  10. SPIRONOLACTONE [Concomitant]
     Active Substance: SPIRONOLACTONE
     Indication: Cardiac disorder
     Route: 065
  11. ENTRESTO [Concomitant]
     Active Substance: SACUBITRIL\VALSARTAN
     Indication: Cardiac disorder
     Route: 065
  12. CARVEDILOL [Concomitant]
     Active Substance: CARVEDILOL
     Indication: Cardiac disorder
     Route: 065
  13. LASIX [Concomitant]
     Active Substance: FUROSEMIDE
     Indication: Cardiac disorder
     Route: 065
  14. PLAVIX [Concomitant]
     Active Substance: CLOPIDOGREL BISULFATE
     Indication: Cardiac disorder
     Route: 065
  15. KCL [Concomitant]
     Active Substance: POTASSIUM CHLORIDE
     Indication: Cardiac disorder
     Route: 065
  16. LEVALBUTEROL [Concomitant]
     Active Substance: LEVALBUTEROL
     Indication: Lung disorder
     Route: 065
  17. LEVALBUTEROL [Concomitant]
     Active Substance: LEVALBUTEROL
     Indication: Obstructive airways disorder
  18. PULMOZYME [Concomitant]
     Active Substance: DORNASE ALFA
     Indication: Lung disorder
     Route: 065
  19. PULMOZYME [Concomitant]
     Active Substance: DORNASE ALFA
     Indication: Obstructive airways disorder
  20. SYNTHROID [Concomitant]
     Active Substance: LEVOTHYROXINE SODIUM
     Indication: Hyperthyroidism
     Route: 065

REACTIONS (1)
  - Inappropriate schedule of product administration [Unknown]
